FAERS Safety Report 8023116-X (Version None)
Quarter: 2012Q1

REPORT INFORMATION
  Report Type: 
  Country: None (occurrence: None)
  Receive Date: 20120104
  Receipt Date: 20111221
  Transmission Date: 20120608
  Serious: Yes (Other)
  Sender: FDA-Public Use
  Company Number: US-PFIZER INC-2011311751

PATIENT
  Age: 47 Year
  Sex: Male

DRUGS (1)
  1. FAMOTIDINE [Suspect]

REACTIONS (1)
  - HEPATITIS [None]
